FAERS Safety Report 4472786-1 (Version None)
Quarter: 2004Q4

REPORT INFORMATION
  Report Type: 
  Country: None (occurrence: None)
  Receive Date: 20041012
  Receipt Date: 20041012
  Transmission Date: 20050328
  Serious: Yes (Other)
  Sender: FDA-Public Use
  Company Number: None

PATIENT
  Age: 24 Year
  Sex: Female
  Weight: 58.9676 kg

DRUGS (3)
  1. VIOXX [Suspect]
     Indication: TENOSYNOVITIS STENOSANS
     Dates: start: 20030408, end: 20030501
  2. CORTISONE INJECTION [Concomitant]
  3. BEXTRA [Concomitant]

REACTIONS (3)
  - MICTURITION URGENCY [None]
  - POLLAKIURIA [None]
  - URGE INCONTINENCE [None]
